FAERS Safety Report 6397118-3 (Version None)
Quarter: 2009Q4

REPORT INFORMATION
  Report Type: 
  Country: None (occurrence: None)
  Receive Date: 20091012
  Receipt Date: 20091006
  Transmission Date: 20100525
  Serious: Yes (Hospitalization)
  Sender: FDA-Public Use
  Company Number: A0790981A

PATIENT
  Age: 74 Year
  Sex: Male

DRUGS (1)
  1. AVANDAMET [Suspect]
     Dosage: 4MG PER DAY
     Route: 048
     Dates: start: 20040101, end: 20080401

REACTIONS (2)
  - MYOCARDIAL INFARCTION [None]
  - MYOCARDIAL ISCHAEMIA [None]
